FAERS Safety Report 6468783-7 (Version None)
Quarter: 2009Q4

REPORT INFORMATION
  Report Type: 
  Country: None (occurrence: None)
  Receive Date: 20091203
  Receipt Date: 20071029
  Transmission Date: 20100525
  Serious: Yes (Hospitalization, Other)
  Sender: FDA-Public Use
  Company Number: JP-ELI_LILLY_AND_COMPANY-US_021088942

PATIENT
  Age: 68 Year
  Sex: Female
  Weight: 60 kg

DRUGS (4)
  1. HUMULIN R [Suspect]
     Indication: DIABETES MELLITUS
     Dosage: UNK, UNKNOWN
     Route: 058
     Dates: start: 20020201
  2. NOVOLIN R [Concomitant]
     Indication: DIABETES MELLITUS
     Dosage: UNK, UNKNOWN
     Dates: start: 20020301
  3. NIFEDIPINE [Concomitant]
     Indication: HYPERTENSION
     Dosage: UNK, UNKNOWN
  4. CILAZAPRIL [Concomitant]
     Indication: HYPERTENSION
     Dosage: UNK, UNKNOWN

REACTIONS (5)
  - ASCITES [None]
  - HEPATIC CIRRHOSIS [None]
  - OEDEMA [None]
  - PLEURAL EFFUSION [None]
  - WEIGHT INCREASED [None]
